FAERS Safety Report 7650275-0 (Version None)
Quarter: 2011Q3

REPORT INFORMATION
  Report Type: 
  Country: None (occurrence: None)
  Receive Date: 20110719
  Receipt Date: 20110309
  Transmission Date: 20111222
  Serious: Yes (Hospitalization)
  Sender: FDA-Public Use
  Company Number: 163-21880-10111611

PATIENT
  Age: 86 Year
  Sex: Female

DRUGS (12)
  1. IVIG (IMMUNOGLOBULIN) (INJECTION FOR INFUSION) [Concomitant]
  2. ZORAN (ONDANSETRON HYDROCHLORIDE) (UNKNOWN) [Concomitant]
  3. TRIAMTERENE/HYDROCHLOROTHIAZIDE (DYAZIDE) (TABLETS) [Concomitant]
  4. REVLIMID [Suspect]
     Indication: MYELODYSPLASTIC SYNDROME
     Dosage: 10 MG, 1 IN 1 D, PO ; PO
     Route: 048
     Dates: start: 20101208, end: 20110228
  5. REVLIMID [Suspect]
     Indication: MYELODYSPLASTIC SYNDROME
     Dosage: 10 MG, 1 IN 1 D, PO ; PO
     Route: 048
     Dates: start: 20101020, end: 20101124
  6. VIDAZA [Suspect]
     Indication: PRODUCT USED FOR UNKNOWN INDICATION
     Dosage: 75 MG/M2, X 7 DAYS Q 28 DAYS
     Dates: start: 20110103, end: 20110228
  7. ACETAMINOPHEN [Concomitant]
  8. HYDROCODONE /APAP (PROCET /USA/) (TABLETS) [Concomitant]
  9. FEMARA [Concomitant]
  10. LEVOTHYROXINE SODIUM [Concomitant]
  11. OMEPRAZOLE [Concomitant]
  12. AMBIEN [Concomitant]

REACTIONS (2)
  - PANCYTOPENIA [None]
  - FEBRILE NEUTROPENIA [None]
